FAERS Safety Report 8360126-7 (Version None)
Quarter: 2012Q2

REPORT INFORMATION
  Report Type: 
  Country: None (occurrence: None)
  Receive Date: 20120515
  Receipt Date: 20120509
  Transmission Date: 20120825
  Serious: Yes (Other)
  Sender: FDA-Public Use
  Company Number: PHFR2012GB001877

PATIENT
  Sex: Female

DRUGS (4)
  1. BISOPROLOL FUMARATE [Concomitant]
     Indication: PALPITATIONS
     Dosage: 2.5 MG, UNK
     Route: 048
     Dates: start: 20071119
  2. ESTRADERM [Suspect]
     Indication: HORMONE REPLACEMENT THERAPY
     Dosage: 25 MCG, EVERY 3-4 DAYS
     Route: 062
  3. FLEXAZONE [Concomitant]
     Indication: RHINITIS
     Dosage: 50 UG, UNK
     Dates: start: 20091005
  4. ESTRADERM [Suspect]
     Dosage: 25 MCG, TWICE WEEKLY
     Route: 062

REACTIONS (3)
  - HOT FLUSH [None]
  - PALPITATIONS [None]
  - HYPERHIDROSIS [None]
